FAERS Safety Report 19198657 (Version 1)
Quarter: 2021Q2

REPORT INFORMATION
  Report Type: Spontaneous
  Country: US (occurrence: US)
  Receive Date: 20210429
  Receipt Date: 20210429
  Transmission Date: 20210717
  Serious: Yes (Other)
  Sender: FDA-Public Use
  Company Number: US-MAYNE PHARMA-2021MYN000265

PATIENT

DRUGS (1)
  1. NORTRIPTYLINE HYDROCHLORIDE. [Suspect]
     Active Substance: NORTRIPTYLINE HYDROCHLORIDE
     Indication: CLUSTER HEADACHE
     Dosage: 25 MG, BID
     Route: 065
     Dates: start: 20210209

REACTIONS (4)
  - Headache [Not Recovered/Not Resolved]
  - Intentional product use issue [Unknown]
  - Drug ineffective for unapproved indication [Recovered/Resolved]
  - Insomnia [Unknown]

NARRATIVE: CASE EVENT DATE: 2021
